FAERS Safety Report 4845916-7 (Version None)
Quarter: 2005Q4

REPORT INFORMATION
  Report Type: 
  Country: None (occurrence: None)
  Receive Date: 20051201
  Receipt Date: 20051122
  Transmission Date: 20060501
  Serious: Yes (Other)
  Sender: FDA-Public Use
  Company Number: 2004-02-1976

PATIENT
  Age: 33 Year
  Sex: Female
  Weight: 71.6683 kg

DRUGS (11)
  1. INTERFERON ALFA-2B INJECTABLE SOLUTION [Suspect]
     Indication: HEPATITIS C
     Dosage: 3 MIU TIW SUBCUTANEOUS
     Route: 058
     Dates: start: 20030701
  2. RIBAVIRIN [Suspect]
     Indication: HEPATITIS C
     Dosage: 1000 MG QD ORAL
     Route: 048
     Dates: start: 20030701
  3. LITHIUM [Concomitant]
  4. CLONAZEPAM [Concomitant]
  5. RESTORIL [Concomitant]
  6. PREVACID [Concomitant]
  7. PRODIEM PLAIN [Concomitant]
  8. EFFEXOR [Concomitant]
  9. VALPROIC ACID [Concomitant]
  10. OXYCOCET [Concomitant]
  11. SEROQUEL (QUETIAPINE FUMURATE) [Concomitant]

REACTIONS (9)
  - ALOPECIA [None]
  - BIPOLAR I DISORDER [None]
  - DYSPNOEA [None]
  - NAUSEA [None]
  - PAIN [None]
  - RASH [None]
  - TUBERCULOSIS [None]
  - VOMITING [None]
  - WEIGHT DECREASED [None]
